FAERS Safety Report 17307549 (Version 1)
Quarter: 2020Q1

REPORT INFORMATION
  Report Type: Spontaneous
  Country: US (occurrence: US)
  Receive Date: 20200106
  Receipt Date: 20200106
  Transmission Date: 20200409
  Serious: Yes (Hospitalization)
  Sender: FDA-Public Use
  Company Number: None

PATIENT
  Age: 70 Year
  Sex: Male
  Weight: 68.95 kg

DRUGS (1)
  1. ATEZOLIZUMAB (ATEZOLIZUMAB30MG/ML INJ. SOLN) [Suspect]
     Active Substance: ATEZOLIZUMAB
     Indication: SMALL CELL LUNG CANCER
     Route: 042
     Dates: start: 20190312, end: 20190423

REACTIONS (3)
  - Autoimmune disorder [None]
  - Pneumonitis [None]
  - Dyspnoea [None]

NARRATIVE: CASE EVENT DATE: 20190503
